FAERS Safety Report 17982609 (Version 2)
Quarter: 2020Q3

REPORT INFORMATION
  Report Type: Spontaneous
  Country: JP (occurrence: JP)
  Receive Date: 20200706
  Receipt Date: 20200728
  Transmission Date: 20201103
  Serious: Yes (Hospitalization)
  Sender: FDA-Public Use
  Company Number: JP-ROCHE-2635939

PATIENT
  Sex: Female

DRUGS (8)
  1. HERCEPTIN [Suspect]
     Active Substance: TRASTUZUMAB
     Indication: BREAST CANCER
     Dosage: RECENT DOSE OF TRASTUZUMAB 29/MAY/2020
     Route: 041
     Dates: start: 20191213
  2. PERJETA [Suspect]
     Active Substance: PERTUZUMAB
     Indication: BREAST CANCER
     Dosage: 420MG/14ML?RECENT DOSE OF PERTUZUMAB 29/MAY/2020
     Route: 041
     Dates: start: 20191213
  3. LOXOPROFEN [Concomitant]
     Active Substance: LOXOPROFEN
     Dosage: DOSE INTERVAL UNCERTAINTY
     Route: 048
  4. LYRICA [Concomitant]
     Active Substance: PREGABALIN
     Dosage: DOSE INTERVAL UNCERTAINTY
     Route: 048
  5. METHYCOBAL [Concomitant]
     Active Substance: METHYLCOBALAMIN
     Dosage: DOSE INTERVAL UNCERTAINTY
     Route: 048
  6. URSO [Concomitant]
     Active Substance: URSODIOL
     Dosage: DOSE INTERVAL UNCERTAINTY
     Route: 048
  7. DOCETAXEL. [Concomitant]
     Active Substance: DOCETAXEL
     Indication: BREAST CANCER
     Dosage: DOSAGE IS UNCERTAIN.
     Route: 041
     Dates: start: 20191213, end: 20200529
  8. TRAMCET [Concomitant]
     Active Substance: ACETAMINOPHEN\TRAMADOL
     Dosage: DOSE INTERVAL UNCERTAINTY
     Route: 048

REACTIONS (1)
  - Interstitial lung disease [Recovering/Resolving]

NARRATIVE: CASE EVENT DATE: 20200616
